FAERS Safety Report 13463011 (Version 3)
Quarter: 2022Q1

REPORT INFORMATION
  Report Type: Spontaneous
  Country: JP (occurrence: JP)
  Receive Date: 20170420
  Receipt Date: 20220318
  Transmission Date: 20220424
  Serious: Yes (Other)
  Sender: FDA-Public Use
  Company Number: JP-MLMSERVICE-20170411-0643629-1

PATIENT
  Age: 62 Year
  Sex: Male

DRUGS (6)
  1. GRISEOFULVIN [Suspect]
     Active Substance: GRISEOFULVIN
     Indication: Dermatitis exfoliative generalised
     Route: 048
  2. GRISEOFULVIN [Suspect]
     Active Substance: GRISEOFULVIN
     Indication: Body tinea
  3. PREDNISOLONE [Concomitant]
     Active Substance: PREDNISOLONE
     Indication: Systemic lupus erythematosus
     Route: 048
  4. CYCLOSPORINE [Concomitant]
     Active Substance: CYCLOSPORINE
     Indication: Systemic lupus erythematosus
     Route: 048
  5. BIFONAZOLE [Concomitant]
     Active Substance: BIFONAZOLE
     Indication: Dermatitis exfoliative generalised
     Route: 061
  6. BIFONAZOLE [Concomitant]
     Active Substance: BIFONAZOLE
     Indication: Body tinea

REACTIONS (2)
  - Condition aggravated [Unknown]
  - Hepatic function abnormal [Unknown]
